FAERS Safety Report 7939294-4 (Version None)
Quarter: 2011Q4

REPORT INFORMATION
  Report Type: 
  Country: None (occurrence: None)
  Receive Date: 20111125
  Receipt Date: 20111122
  Transmission Date: 20120403
  Serious: Yes (Disabling)
  Sender: FDA-Public Use
  Company Number: GB-SP-2011-09593

PATIENT
  Sex: Male

DRUGS (1)
  1. IMMUCYST [Suspect]
     Indication: BLADDER DISORDER
     Dosage: NOT REPORTED
     Route: 065
     Dates: start: 20090801, end: 20110201

REACTIONS (4)
  - HAEMATURIA [None]
  - OFF LABEL USE [None]
  - REDUCED BLADDER CAPACITY [None]
  - ADVERSE EVENT [None]
